FAERS Safety Report 10350689 (Version 5)
Quarter: 2015Q3

REPORT INFORMATION
  Report Type: Report from Study
  Country: AU (occurrence: AU)
  Receive Date: 20140730
  Receipt Date: 20150723
  Transmission Date: 20151125
  Serious: Yes (Other)
  Sender: FDA-Public Use
  Company Number: AU-SA-2014SA016103

PATIENT
  Age: 67 Year
  Sex: Female

DRUGS (14)
  1. ARAVA [Suspect]
     Active Substance: LEFLUNOMIDE
     Indication: RHEUMATOID ARTHRITIS
     Route: 048
     Dates: start: 20131209, end: 20150601
  2. AMITRIPTYLINE [Concomitant]
     Active Substance: AMITRIPTYLINE
  3. METHOTREXATE [Suspect]
     Active Substance: METHOTREXATE
  4. PANADEINE FORTE [Concomitant]
     Active Substance: ACETAMINOPHEN\CODEINE PHOSPHATE
  5. CARDIZEM [Concomitant]
     Active Substance: DILTIAZEM HYDROCHLORIDE
  6. XARELTO [Concomitant]
     Active Substance: RIVAROXABAN
  7. JANUMET [Concomitant]
     Active Substance: METFORMIN HYDROCHLORIDE\SITAGLIPTIN PHOSPHATE
  8. CODEINE [Concomitant]
     Active Substance: CODEINE
  9. PANADOL [Concomitant]
     Active Substance: ACETAMINOPHEN
  10. AVINZA [Concomitant]
     Active Substance: MORPHINE SULFATE
  11. FOLIC ACID. [Concomitant]
     Active Substance: FOLIC ACID
  12. METFORMIN [Concomitant]
     Active Substance: METFORMIN HYDROCHLORIDE
  13. LYRICA [Concomitant]
     Active Substance: PREGABALIN
  14. NEXIUM [Concomitant]
     Active Substance: ESOMEPRAZOLE MAGNESIUM

REACTIONS (27)
  - Facial pain [Not Recovered/Not Resolved]
  - Cataract [Not Recovered/Not Resolved]
  - Condition aggravated [Unknown]
  - Mouth ulceration [Not Recovered/Not Resolved]
  - Local swelling [Not Recovered/Not Resolved]
  - Blood test abnormal [Recovering/Resolving]
  - Cardiac infection [Not Recovered/Not Resolved]
  - Ligament rupture [Not Recovered/Not Resolved]
  - Abasia [Not Recovered/Not Resolved]
  - Impaired healing [Not Recovered/Not Resolved]
  - Blood potassium decreased [Recovering/Resolving]
  - Blood sodium decreased [Recovering/Resolving]
  - Fall [Unknown]
  - Muscular weakness [Recovering/Resolving]
  - Electrocardiogram ambulatory abnormal [Not Recovered/Not Resolved]
  - Pyrexia [Not Recovered/Not Resolved]
  - Diarrhoea [Not Recovered/Not Resolved]
  - Glaucoma [Recovered/Resolved]
  - Atrial fibrillation [Not Recovered/Not Resolved]
  - Eye disorder [Not Recovered/Not Resolved]
  - Feeling abnormal [Not Recovered/Not Resolved]
  - Vasculitis [Not Recovered/Not Resolved]
  - Paraesthesia [Not Recovered/Not Resolved]
  - Pain [Not Recovered/Not Resolved]
  - Joint dislocation [Not Recovered/Not Resolved]
  - Blood glucose increased [Not Recovered/Not Resolved]
  - Arthralgia [Not Recovered/Not Resolved]

NARRATIVE: CASE EVENT DATE: 2014
